FAERS Safety Report 7242929-5 (Version None)
Quarter: 2011Q1

REPORT INFORMATION
  Report Type: 
  Country: None (occurrence: None)
  Receive Date: 20110125
  Receipt Date: 20110120
  Transmission Date: 20110831
  Serious: Yes (Life-Threatening)
  Sender: FDA-Public Use
  Company Number: FR-NOVOPROD-322042

PATIENT
  Age: 85 Year
  Sex: Female

DRUGS (16)
  1. ASPEGIC 1000 [Concomitant]
  2. NOVOMIX 30 [Suspect]
     Dosage: 30 IU, QD (20 IU, 0 IU, 10 IU)
     Route: 058
     Dates: start: 20101220
  3. AMLODIPINE [Concomitant]
     Dosage: UNK
  4. PLAVIX [Concomitant]
  5. SECTRAL [Concomitant]
  6. NOVOMIX 30 [Suspect]
     Dosage: 56 IU, QD (36 IU IN MORNING, 0 IU AT NOON, 20 IU AT EVENING)
     Route: 058
     Dates: start: 20101217, end: 20101219
  7. BETNEVAL [Suspect]
     Indication: ERYTHRODERMIC PSORIASIS
     Dosage: TWICE DAILY APPLICATION
     Route: 061
     Dates: start: 20101208, end: 20101215
  8. CETIRIZINE HCL [Concomitant]
  9. NITROGLYCERIN [Concomitant]
  10. BETNEVAL [Suspect]
     Dosage: TWICE APPLICATION PER WEEK
     Route: 061
     Dates: start: 20101220
  11. SORIATANE [Suspect]
     Indication: ERYTHRODERMIC PSORIASIS
     Dosage: 20 MG, QD
     Route: 048
     Dates: start: 20101208, end: 20101215
  12. SORIATANE [Suspect]
     Dosage: 30 MG, UNK
     Route: 048
     Dates: start: 20101215, end: 20101220
  13. SORIATANE [Suspect]
     Dosage: 20 MG, UNK
     Route: 048
     Dates: start: 20101220
  14. GABAPENTIN [Concomitant]
  15. VASTAREL [Concomitant]
  16. NOVOMIX 30 [Suspect]
     Indication: TYPE 1 DIABETES MELLITUS
     Dosage: 68 IU, QD (34 IU AT MORNING, 24 AT NOON AND 10 IU AT EVENING)
     Route: 058
     Dates: end: 20101216

REACTIONS (3)
  - LOSS OF CONSCIOUSNESS [None]
  - DRUG INTERACTION [None]
  - HYPOGLYCAEMIC SEIZURE [None]
